FAERS Safety Report 6290840-9 (Version None)
Quarter: 2009Q3

REPORT INFORMATION
  Report Type: 
  Country: None (occurrence: None)
  Receive Date: 20090729
  Receipt Date: 20090729
  Transmission Date: 20100115
  Serious: Yes (Hospitalization)
  Sender: FDA-Public Use
  Company Number: None

PATIENT
  Age: 40 Year
  Sex: Male
  Weight: 88.6 kg

DRUGS (2)
  1. DACARBAZINE [Suspect]
     Indication: MALIGNANT MELANOMA
     Dosage: 1000 MG/M2 Q22 DAYS
     Dates: start: 20090619, end: 20090710
  2. DASATINIB [Suspect]
     Indication: MALIGNANT MELANOMA
     Dosage: 100 MG QD X18 DAYS
     Dates: start: 20090620, end: 20090726

REACTIONS (3)
  - ANAEMIA [None]
  - LOWER GASTROINTESTINAL HAEMORRHAGE [None]
  - THROMBOCYTOPENIA [None]
